FAERS Safety Report 6741173-5 (Version None)
Quarter: 2010Q2

REPORT INFORMATION
  Report Type: 
  Country: None (occurrence: None)
  Receive Date: 20100525
  Receipt Date: 20100525
  Transmission Date: 20101027
  Serious: Yes (Other)
  Sender: FDA-Public Use
  Company Number: None

PATIENT
  Age: 14 Year
  Sex: Female
  Weight: 46.7205 kg

DRUGS (2)
  1. CLARITHROMYCIN [Suspect]
     Indication: BACTERIAL INFECTION
     Dosage: PREV PAK 60 MG
     Dates: start: 20100401, end: 20100501
  2. CLARITHROMYCIN [Suspect]
     Indication: HELICOBACTER INFECTION
     Dosage: PREV PAK 60 MG
     Dates: start: 20100401, end: 20100501

REACTIONS (6)
  - ANXIETY [None]
  - DISSOCIATION [None]
  - HALLUCINATION [None]
  - MANIA [None]
  - PARANOIA [None]
  - PSYCHOTIC DISORDER [None]
